FAERS Safety Report 14473580 (Version 1)
Quarter: 2018Q1

REPORT INFORMATION
  Report Type: Spontaneous
  Country: US (occurrence: US)
  Receive Date: 20180201
  Receipt Date: 20180201
  Transmission Date: 20180509
  Serious: Yes (Life-Threatening, Other)
  Sender: FDA-Public Use
  Company Number: US-WEST-WARD PHARMACEUTICALS CORP.-US-H14001-18-00649

PATIENT
  Age: 56 Year
  Sex: Female

DRUGS (2)
  1. FENTANYL. [Suspect]
     Active Substance: FENTANYL
     Indication: ANALGESIC THERAPY
  2. FENTANYL. [Suspect]
     Active Substance: FENTANYL
     Indication: PREMEDICATION
     Dosage: ()
     Route: 065

REACTIONS (2)
  - Muscle rigidity [Recovered/Resolved]
  - Airway peak pressure increased [Recovered/Resolved]
